FAERS Safety Report 8411174-X (Version None)
Quarter: 2012Q2

REPORT INFORMATION
  Report Type: 
  Country: None (occurrence: None)
  Receive Date: 20120605
  Receipt Date: 20120501
  Transmission Date: 20120825
  Serious: No
  Sender: FDA-Public Use
  Company Number: US-AMGEN-USASP2012027442

PATIENT
  Age: 50 Year
  Sex: Female

DRUGS (1)
  1. ENBREL [Suspect]
     Indication: ANKYLOSING SPONDYLITIS
     Dosage: 50 MG, QWK
     Dates: start: 20120427

REACTIONS (7)
  - DIZZINESS [None]
  - LIGAMENT SPRAIN [None]
  - INJECTION SITE PAIN [None]
  - PAIN IN EXTREMITY [None]
  - FATIGUE [None]
  - BACK PAIN [None]
  - FOOT FRACTURE [None]
